FAERS Safety Report 9451015 (Version 3)
Quarter: 2013Q3

REPORT INFORMATION
  Report Type: Spontaneous
  Country: IT (occurrence: None)
  Receive Date: 20130807
  Receipt Date: 20130830
  Transmission Date: 20140515
  Serious: Yes (Life-Threatening, Hospitalization, Other)
  Sender: FDA-Public Use
  Company Number: AUR-APL-2013-06301

PATIENT
  Age: 50 Year
  Sex: Female

DRUGS (7)
  1. METFORMIN [Suspect]
     Indication: PRODUCT USED FOR UNKNOWN INDICATION
     Route: 048
     Dates: start: 20130615, end: 20130615
  2. DEPAKIN CHRONO [Suspect]
     Indication: PRODUCT USED FOR UNKNOWN INDICATION
     Route: 048
     Dates: start: 20130615, end: 20130615
  3. TACHIPIRINA [Suspect]
     Indication: PRODUCT USED FOR UNKNOWN INDICATION
     Route: 048
     Dates: start: 20130615, end: 20130615
  4. MOMENT 200 [Suspect]
     Indication: PRODUCT USED FOR UNKNOWN INDICATION
     Route: 048
     Dates: start: 20130615, end: 20130615
  5. MOMENTACT [Suspect]
     Indication: PRODUCT USED FOR UNKNOWN INDICATION
     Route: 048
     Dates: start: 20130615, end: 20130615
  6. ENANTYUM [Suspect]
     Indication: PRODUCT USED FOR UNKNOWN INDICATION
     Route: 048
     Dates: start: 20130615, end: 20130615
  7. ZERINOL [Suspect]
     Indication: PRODUCT USED FOR UNKNOWN INDICATION
     Route: 048
     Dates: start: 20130615, end: 20130615

REACTIONS (8)
  - Sopor [None]
  - Aphasia [None]
  - Suicide attempt [None]
  - Headache [None]
  - Somnolence [None]
  - Coma scale abnormal [None]
  - Body temperature decreased [None]
  - Drug abuse [None]
